FAERS Safety Report 16465177 (Version 3)
Quarter: 2019Q3

REPORT INFORMATION
  Report Type: Spontaneous
  Country: DK (occurrence: DK)
  Receive Date: 20190621
  Receipt Date: 20190802
  Transmission Date: 20191004
  Serious: Yes (Other)
  Sender: FDA-Public Use
  Company Number: DK-PFIZER INC-2019267517

PATIENT
  Age: 5 Year
  Sex: Female

DRUGS (1)
  1. INFLIXIMAB HOSPIRA [Suspect]
     Active Substance: INFLIXIMAB
     Indication: PUSTULAR PSORIASIS
     Dosage: 6.5 MG/KG, CYCLIC (THREE TIMES WITH 2 WEEKS INTERVAL AND THEREAFTER EVERY 4 WEEKS)
     Route: 065

REACTIONS (3)
  - Anaphylactoid reaction [Unknown]
  - Off label use [Unknown]
  - Product use issue [Unknown]
